FAERS Safety Report 19088552 (Version 1)
Quarter: 2021Q2

REPORT INFORMATION
  Report Type: Spontaneous
  Country: IN (occurrence: IN)
  Receive Date: 20210402
  Receipt Date: 20210402
  Transmission Date: 20210717
  Serious: Yes (Hospitalization, Other)
  Sender: FDA-Public Use
  Company Number: IN-VALIDUS PHARMACEUTICALS LLC-IN-2021VAL000759

PATIENT
  Age: 18 Month
  Sex: Male
  Weight: 7.4 kg

DRUGS (3)
  1. FUROSEMIDE. [Suspect]
     Active Substance: FUROSEMIDE
     Indication: PRODUCT USED FOR UNKNOWN INDICATION
     Route: 048
  2. CYCLOSPORINE. [Concomitant]
     Active Substance: CYCLOSPORINE
     Indication: PRODUCT USED FOR UNKNOWN INDICATION
     Dosage: 6 MG/KG, QD
     Route: 065
  3. ENALAPRIL MALEATE. [Suspect]
     Active Substance: ENALAPRIL MALEATE
     Indication: PRODUCT USED FOR UNKNOWN INDICATION
     Route: 048

REACTIONS (18)
  - Diarrhoea infectious [Unknown]
  - Paralysis [Unknown]
  - Hypocalcaemia [Unknown]
  - Hypomagnesaemia [Unknown]
  - Hypotonia [Unknown]
  - Pallor [Unknown]
  - Asthenia [Unknown]
  - Wheezing [Unknown]
  - Hypercholesterolaemia [Unknown]
  - Hypoalbuminaemia [Unknown]
  - Nasopharyngitis [Unknown]
  - Dropped head syndrome [Unknown]
  - Hypokalaemia [Unknown]
  - Oliguria [Unknown]
  - Hyporeflexia [Unknown]
  - Cough [Unknown]
  - Oedema peripheral [Unknown]
  - Swelling face [Unknown]
